FAERS Safety Report 10950667 (Version 2)
Quarter: 2015Q1

REPORT INFORMATION
  Report Type: Spontaneous
  Country: JP (occurrence: JP)
  Receive Date: 20150324
  Receipt Date: 20150330
  Transmission Date: 20150721
  Serious: Yes (Hospitalization, Other)
  Sender: FDA-Public Use
  Company Number: JP-PFIZER INC-2015086315

PATIENT
  Age: 49 Year
  Sex: Female

DRUGS (2)
  1. SUTENT [Suspect]
     Active Substance: SUNITINIB MALATE
     Indication: RENAL CELL CARCINOMA
     Dosage: UNK
     Dates: start: 20111213, end: 20120301
  2. SUTENT [Suspect]
     Active Substance: SUNITINIB MALATE
     Dosage: UNK
     Dates: start: 20121024, end: 20130329

REACTIONS (4)
  - Renal cell carcinoma [Unknown]
  - Disease progression [Unknown]
  - Ascites [Recovering/Resolving]
  - Pleural effusion [Recovering/Resolving]
